FAERS Safety Report 8576804-0 (Version None)
Quarter: 2012Q3

REPORT INFORMATION
  Report Type: 
  Country: None (occurrence: None)
  Receive Date: 20120807
  Receipt Date: 20120803
  Transmission Date: 20120928
  Serious: Yes (Hospitalization)
  Sender: FDA-Public Use
  Company Number: US-AMGEN-US239916

PATIENT
  Age: 36 Year
  Sex: Male

DRUGS (10)
  1. SEVELAMER HCL [Concomitant]
  2. TENOFOVIR DISOPROXIL FUMARAT [Concomitant]
  3. TOPROL-XL [Concomitant]
  4. CINACALCET HYDROCHLORIDE [Suspect]
     Indication: HYPERPARATHYROIDISM SECONDARY
     Dosage: UNK UNK, QD
     Route: 048
     Dates: start: 20061216
  5. CELEXA [Concomitant]
  6. ENALAPRIL MALEATE [Concomitant]
  7. DOCUSATE SODIUM [Concomitant]
  8. NEPHROCAPS [Concomitant]
  9. NEVIRAPINE [Concomitant]
  10. ASPIRIN [Concomitant]

REACTIONS (1)
  - MUSCULAR WEAKNESS [None]
